FAERS Safety Report 12607624 (Version 1)
Quarter: 2016Q3

REPORT INFORMATION
  Report Type: Spontaneous
  Country: US (occurrence: US)
  Receive Date: 20160729
  Receipt Date: 20160729
  Transmission Date: 20161109
  Serious: No
  Sender: FDA-Public Use
  Company Number: US-GE HEALTHCARE MEDICAL DIAGNOSTICS-DATS-PR-1605S-0038

PATIENT
  Age: 79 Year
  Sex: Male

DRUGS (2)
  1. DATSCAN [Suspect]
     Active Substance: IODINE\IOFLUPANE I-123
     Indication: DIAGNOSTIC PROCEDURE
  2. DATSCAN [Suspect]
     Active Substance: IODINE\IOFLUPANE I-123
     Indication: ESSENTIAL TREMOR
     Route: 042
     Dates: start: 20160510, end: 20160510

REACTIONS (2)
  - No adverse event [Recovered/Resolved]
  - Radioisotope scan abnormal [Recovered/Resolved]

NARRATIVE: CASE EVENT DATE: 20160510
